FAERS Safety Report 16790929 (Version 1)
Quarter: 2019Q3

REPORT INFORMATION
  Report Type: Report from Study
  Country: TN (occurrence: TN)
  Receive Date: 20190910
  Receipt Date: 20190910
  Transmission Date: 20191005
  Serious: Yes (Death)
  Sender: FDA-Public Use
  Company Number: TN-SA-2019SA251038

PATIENT
  Age: 75 Year
  Sex: Male

DRUGS (4)
  1. ATOR [Concomitant]
     Active Substance: ATORVASTATIN CALCIUM
  2. CLOPIDOGREL BISULFATE. [Suspect]
     Active Substance: CLOPIDOGREL BISULFATE
     Indication: CORONARY ANGIOPLASTY
     Dosage: 1 TABLET OF 75 MG, QD
     Route: 048
     Dates: start: 20190428
  3. ASPIRIN [ACETYLSALICYLIC ACID] [Concomitant]
     Active Substance: ASPIRIN
  4. CINCOR [Concomitant]

REACTIONS (1)
  - Cardiac arrest [Fatal]
